FAERS Safety Report 6696727-1 (Version None)
Quarter: 2010Q2

REPORT INFORMATION
  Report Type: 
  Country: None (occurrence: None)
  Receive Date: 20100426
  Receipt Date: 20090520
  Transmission Date: 20101027
  Serious: Yes (Disabling, Congenital Anomaly)
  Sender: FDA-Public Use
  Company Number: SE-SANOFI-AVENTIS-A01200905244

PATIENT
  Sex: Female
  Weight: 1.55 kg

DRUGS (4)
  1. RAMIPRIL [Suspect]
     Route: 064
  2. FUROSEMIDE [Suspect]
     Route: 064
  3. ATACAND [Suspect]
     Route: 064
  4. SELOKEN [Suspect]
     Route: 064

REACTIONS (6)
  - ANURIA [None]
  - DRUG EXPOSURE DURING PREGNANCY [None]
  - HYPOTENSION [None]
  - OLIGOHYDRAMNIOS [None]
  - RETINOPATHY OF PREMATURITY [None]
  - SMALL FOR DATES BABY [None]
